FAERS Safety Report 15314688 (Version 2)
Quarter: 2018Q3

REPORT INFORMATION
  Report Type: Report from Study
  Country: DE (occurrence: DE)
  Receive Date: 20180824
  Receipt Date: 20180829
  Transmission Date: 20181010
  Serious: No
  Sender: FDA-Public Use
  Company Number: DE-ROCHE-2173640

PATIENT
  Age: 34 Year
  Sex: Female
  Weight: 84 kg

DRUGS (7)
  1. METYPRED [Concomitant]
     Active Substance: METHYLPREDNISOLONE
     Route: 042
     Dates: start: 20180828, end: 20180828
  2. FENISTIL (GERMANY) [Concomitant]
     Route: 042
     Dates: start: 20180828, end: 20180828
  3. FENISTIL (GERMANY) [Concomitant]
     Indication: PROPHYLAXIS
     Route: 042
     Dates: start: 20180801, end: 20180801
  4. INTERFERON BETA 1A [Concomitant]
     Active Substance: INTERFERON BETA-1A
     Route: 058
     Dates: start: 2007, end: 2008
  5. OCRELIZUMAB. [Suspect]
     Active Substance: OCRELIZUMAB
     Indication: MULTIPLE SCLEROSIS
     Route: 042
     Dates: start: 20180801
  6. METYPRED [Concomitant]
     Active Substance: METHYLPREDNISOLONE
     Indication: PROPHYLAXIS
     Route: 042
     Dates: start: 20180801, end: 20180801
  7. NATALIZUMAB [Concomitant]
     Active Substance: NATALIZUMAB
     Route: 065
     Dates: start: 2008, end: 201804

REACTIONS (1)
  - Oral herpes [Recovered/Resolved]

NARRATIVE: CASE EVENT DATE: 20180817
